FAERS Safety Report 15832556 (Version 1)
Quarter: 2019Q1

REPORT INFORMATION
  Report Type: Spontaneous
  Country: US (occurrence: US)
  Receive Date: 20190116
  Receipt Date: 20190116
  Transmission Date: 20190417
  Serious: Yes (Other)
  Sender: FDA-Public Use
  Company Number: None

PATIENT
  Age: 60 Year
  Sex: Male
  Weight: 94.5 kg

DRUGS (9)
  1. TELMISARTAN  TABLETS [Suspect]
     Active Substance: TELMISARTAN
     Indication: HYPERTENSION
     Dosage: ?          QUANTITY:1 TABLET(S);?
     Route: 048
     Dates: start: 20190110, end: 20190115
  2. HCTZ [Concomitant]
     Active Substance: HYDROCHLOROTHIAZIDE
  3. COENZYME Q10 [Concomitant]
     Active Substance: UBIDECARENONE
  4. BERBERINE [Concomitant]
     Active Substance: BERBERINE
  5. L-GLUTAMINE /00503401/ [Concomitant]
     Active Substance: GLUTAMINE
  6. PROBIOTIC [Concomitant]
     Active Substance: PROBIOTICS NOS
  7. FISH OIL [Concomitant]
     Active Substance: FISH OIL
  8. GEMFIBROZIL. [Concomitant]
     Active Substance: GEMFIBROZIL
  9. MAGNESIUM [Concomitant]
     Active Substance: MAGNESIUM

REACTIONS (5)
  - Product substitution issue [None]
  - Insomnia [None]
  - Anxiety [None]
  - Back disorder [None]
  - Nervous system disorder [None]

NARRATIVE: CASE EVENT DATE: 20190115
